FAERS Safety Report 14803994 (Version 12)
Quarter: 2020Q4

REPORT INFORMATION
  Report Type: Spontaneous
  Country: US (occurrence: US)
  Receive Date: 20180425
  Receipt Date: 20201111
  Transmission Date: 20210113
  Serious: Yes (Death, Other)
  Sender: FDA-Public Use
  Company Number: US-PFIZER INC-2018168083

PATIENT
  Age: 61 Year
  Sex: Female

DRUGS (3)
  1. XELJANZ XR [Suspect]
     Active Substance: TOFACITINIB CITRATE
     Dosage: 11 MG, 1X/DAY
     Route: 048
     Dates: start: 20190424
  2. XELJANZ XR [Suspect]
     Active Substance: TOFACITINIB CITRATE
     Indication: RHEUMATOID ARTHRITIS
     Dosage: 11 MG, 1X/DAY
     Route: 048
     Dates: start: 20180306, end: 2018
  3. XELJANZ XR [Suspect]
     Active Substance: TOFACITINIB CITRATE
     Dosage: 11 MG, 1X/DAY
     Route: 048
     Dates: start: 2018

REACTIONS (13)
  - Death [Fatal]
  - Dysuria [Unknown]
  - Pain in extremity [Recovering/Resolving]
  - Musculoskeletal discomfort [Unknown]
  - Intervertebral disc protrusion [Unknown]
  - Condition aggravated [Unknown]
  - Paraesthesia [Recovering/Resolving]
  - Constipation [Recovering/Resolving]
  - Pain [Unknown]
  - Condition aggravated [Recovering/Resolving]
  - Flatulence [Unknown]
  - Hypoaesthesia [Unknown]
  - Alopecia [Unknown]

NARRATIVE: CASE EVENT DATE: 2018
